FAERS Safety Report 5760587-3 (Version None)
Quarter: 2008Q2

REPORT INFORMATION
  Report Type: 
  Country: None (occurrence: None)
  Receive Date: 20080602
  Receipt Date: 20080520
  Transmission Date: 20081010
  Serious: Yes (Other)
  Sender: FDA-Public Use
  Company Number: FEI2008-0974

PATIENT
  Age: 36 Year
  Sex: Female
  Weight: 99.7913 kg

DRUGS (2)
  1. PARAGARD T 380A [Suspect]
     Indication: CONTRACEPTION
     Dosage: INTRA-UTERINE
     Dates: start: 20030101
  2. NEXIUM [Concomitant]

REACTIONS (7)
  - ANAEMIA [None]
  - CARDIAC MURMUR [None]
  - FATIGUE [None]
  - LOSS OF CONSCIOUSNESS [None]
  - MENORRHAGIA [None]
  - PALPITATIONS [None]
  - URINE COPPER INCREASED [None]
